APPROVED DRUG PRODUCT: TOLAZAMIDE
Active Ingredient: TOLAZAMIDE
Strength: 250MG
Dosage Form/Route: TABLET;ORAL
Application: A070163 | Product #001
Applicant: BARR LABORATORIES INC
Approved: Jan 14, 1986 | RLD: No | RS: No | Type: DISCN